FAERS Safety Report 20013410 (Version 3)
Quarter: 2021Q4

REPORT INFORMATION
  Report Type: Other
  Country: KR (occurrence: None)
  Receive Date: 20211029
  Receipt Date: 20211226
  Transmission Date: 20220303
  Serious: Yes (Other)
  Sender: FDA-Public Use
  Company Number: KR-ROCHE-2942951

PATIENT
  Age: 75 Year
  Sex: Male

DRUGS (9)
  1. ATEZOLIZUMAB [Suspect]
     Active Substance: ATEZOLIZUMAB
     Indication: Non-small cell lung cancer metastatic
     Dosage: NEXT DOSES ON 29/JUL/2021, 19/AUG/2021, 09/SEP/2021, 30/SEP/2021, 21/OCT/2021
     Route: 041
     Dates: start: 20210708
  2. GASTER [Concomitant]
     Active Substance: FAMOTIDINE
  3. STALEVO [Concomitant]
     Active Substance: CARBIDOPA\ENTACAPONE\LEVODOPA
  4. PLAVIX [Concomitant]
     Active Substance: CLOPIDOGREL BISULFATE
  5. LIPIDIL [Concomitant]
     Active Substance: FENOFIBRATE
  6. MEGACE [Concomitant]
     Active Substance: MEGESTROL ACETATE
  7. POLYBUTINE [Concomitant]
     Indication: Gastritis
     Dates: start: 20211021
  8. NEPHVITA [Concomitant]
     Dates: start: 20211021
  9. FOTAGEL [Concomitant]
     Indication: Diarrhoea
     Dates: start: 20211025, end: 20211027

REACTIONS (2)
  - Azotaemia [Recovering/Resolving]
  - Diarrhoea [Recovering/Resolving]

NARRATIVE: CASE EVENT DATE: 20211021
